FAERS Safety Report 7519478-X (Version None)
Quarter: 2011Q2

REPORT INFORMATION
  Report Type: 
  Country: None (occurrence: None)
  Receive Date: 20110524
  Receipt Date: 20110511
  Transmission Date: 20111010
  Serious: Yes (Other)
  Sender: FDA-Public Use
  Company Number: TRP_07743_2011

PATIENT
  Sex: Male

DRUGS (4)
  1. MYCOPHENOLATE MEFETIL [Concomitant]
  2. RIBAVIRIN [Suspect]
     Indication: HEPATITIS C
     Dosage: DF
     Dates: start: 20000101
  3. PEGINTERFERON (PEGYLATED INTERFERON) [Suspect]
     Indication: HEPATITIS C
     Dosage: DF
     Dates: start: 20000101
  4. CYCLOSPORINE [Concomitant]

REACTIONS (6)
  - RENAL FAILURE [None]
  - ANAEMIA [None]
  - HEPATIC CIRRHOSIS [None]
  - SEPSIS [None]
  - HAEMODIALYSIS [None]
  - CONVULSION [None]
